FAERS Safety Report 10279370 (Version 2)
Quarter: 2014Q3

REPORT INFORMATION
  Report Type: Spontaneous
  Country: ZA (occurrence: ZA)
  Receive Date: 20140707
  Receipt Date: 20140721
  Transmission Date: 20150326
  Serious: Yes (Death, Other)
  Sender: FDA-Public Use
  Company Number: PHHY2014ZA082749

PATIENT
  Age: 15 Year
  Sex: Female

DRUGS (4)
  1. DESFERAL [Concomitant]
     Active Substance: DEFEROXAMINE MESYLATE
     Dosage: UNK UKN, CONTINUOUS INFUSION EVERY 3 TO 4 WEEKS
  2. DESFERAL [Concomitant]
     Active Substance: DEFEROXAMINE MESYLATE
     Indication: THALASSAEMIA BETA
     Dosage: UNK UKN, CONTINUOUS INFUSION 1 TO 2 DAYS PER WEEK FOR SEVERAL MONTHS
  3. RITALIN [Concomitant]
     Active Substance: METHYLPHENIDATE HYDROCHLORIDE
     Dosage: UNK UKN, UNK
  4. EXJADE [Suspect]
     Active Substance: DEFERASIROX
     Indication: THALASSAEMIA BETA
     Dosage: 1.5 G, DAILY (30-40 MG/KG)

REACTIONS (9)
  - Nervous system disorder [Fatal]
  - Upper gastrointestinal haemorrhage [Fatal]
  - Serum ferritin increased [Unknown]
  - Aggression [Fatal]
  - Thinking abnormal [Unknown]
  - Iron overload [Unknown]
  - Gastritis [Fatal]
  - General physical health deterioration [Unknown]
  - Toxicity to various agents [Unknown]
